FAERS Safety Report 6220532-3 (Version None)
Quarter: 2009Q2

REPORT INFORMATION
  Report Type: 
  Country: None (occurrence: None)
  Receive Date: 20090610
  Receipt Date: 20090529
  Transmission Date: 20091009
  Serious: Yes (Death, Hospitalization)
  Sender: FDA-Public Use
  Company Number: JP-AMGEN-US347989

PATIENT
  Age: 77 Year
  Sex: Female

DRUGS (7)
  1. ENBREL [Suspect]
     Indication: RHEUMATOID ARTHRITIS
     Dosage: UNSPECIFIED
     Route: 058
  2. PREDNISOLONE [Concomitant]
  3. SHAKUYAKUKANZOUBUSHITOU [Concomitant]
  4. FOSAMAX [Concomitant]
  5. GOSHAJINKIGAN [Concomitant]
  6. METOLATE [Concomitant]
  7. GASTER [Concomitant]

REACTIONS (3)
  - CARDIAC FAILURE [None]
  - FEMORAL NECK FRACTURE [None]
  - MYOCARDIAL ISCHAEMIA [None]
